FAERS Safety Report 8253603-0 (Version None)
Quarter: 2012Q2

REPORT INFORMATION
  Report Type: 
  Country: None (occurrence: None)
  Receive Date: 20120402
  Receipt Date: 20120307
  Transmission Date: 20120825
  Serious: No
  Sender: FDA-Public Use
  Company Number: US-AMGEN-USASP2012016953

PATIENT
  Age: 50 Year
  Sex: Female

DRUGS (3)
  1. METHOTREXATE SODIUM [Concomitant]
     Dosage: UNK
  2. ENBREL [Suspect]
     Indication: RHEUMATOID ARTHRITIS
     Dosage: UNK
     Route: 058
  3. FOLIC ACID [Concomitant]
     Dosage: UNK

REACTIONS (4)
  - NAUSEA [None]
  - INJECTION SITE PAIN [None]
  - TEMPERATURE INTOLERANCE [None]
  - DRUG INEFFECTIVE [None]
